FAERS Safety Report 5999092-8 (Version None)
Quarter: 2008Q4

REPORT INFORMATION
  Report Type: 
  Country: None (occurrence: None)
  Receive Date: 20081211
  Receipt Date: 20081203
  Transmission Date: 20090506
  Serious: Yes (Life-Threatening)
  Sender: FDA-Public Use
  Company Number: C2008-200-1001

PATIENT
  Sex: Female

DRUGS (1)
  1. CEFAZOLIN, UNKNOWN STRENGTH AND MFR [Suspect]

REACTIONS (4)
  - INFECTION [None]
  - MULTIPLE INJURIES [None]
  - PAIN [None]
  - PRODUCT QUALITY ISSUE [None]
